FAERS Safety Report 9411827 (Version 2)
Quarter: 2013Q3

REPORT INFORMATION
  Report Type: Spontaneous
  Country: US (occurrence: US)
  Receive Date: 20130722
  Receipt Date: 20130724
  Transmission Date: 20140515
  Serious: No
  Sender: FDA-Public Use
  Company Number: US-PFIZER INC-2013211002

PATIENT
  Age: 60 Year
  Sex: Male
  Weight: 99 kg

DRUGS (5)
  1. PROTONIX [Suspect]
     Indication: GASTROOESOPHAGEAL REFLUX DISEASE
     Dosage: 40 MG, 1X/DAY
     Route: 048
     Dates: start: 201304, end: 20130715
  2. PROTONIX [Suspect]
     Dosage: 40 MG, ON AND OFF
     Dates: end: 201304
  3. RITALIN [Concomitant]
     Dosage: 20 MG, UNK
  4. ACETYLSALICYLIC ACID [Concomitant]
     Dosage: 81 MG, UNK
  5. CRESTOR [Concomitant]
     Dosage: 5 MG, UNK

REACTIONS (1)
  - Dyspnoea [Not Recovered/Not Resolved]
